FAERS Safety Report 15334174 (Version 2)
Quarter: 2020Q1

REPORT INFORMATION
  Report Type: Report from Study
  Country: US (occurrence: US)
  Receive Date: 20180830
  Receipt Date: 20200123
  Transmission Date: 20200409
  Serious: Yes (Life-Threatening, Other)
  Sender: FDA-Public Use
  Company Number: US-PFIZER INC-2018345990

PATIENT

DRUGS (2)
  1. MAGNESIUM SULFATE. [Suspect]
     Active Substance: MAGNESIUM SULFATE
     Dosage: 2 G, UNK (2 GRAMS PER HOUR CONTINUOUS INFUSION FOR 12 HOURS)
     Route: 064
     Dates: start: 2014
  2. MAGNESIUM SULFATE. [Suspect]
     Active Substance: MAGNESIUM SULFATE
     Dosage: 6 G, UNK, (BOLUS)
     Route: 064
     Dates: start: 2014

REACTIONS (2)
  - Maternal exposure during pregnancy [Unknown]
  - Intraventricular haemorrhage neonatal [Unknown]

NARRATIVE: CASE EVENT DATE: 2014
